FAERS Safety Report 17909724 (Version 1)
Quarter: 2020Q2

REPORT INFORMATION
  Report Type: Spontaneous
  Country: US (occurrence: US)
  Receive Date: 20200618
  Receipt Date: 20200618
  Transmission Date: 20200714
  Serious: Yes (Other)
  Sender: FDA-Public Use
  Company Number: US-ROCHE-2620539

PATIENT
  Sex: Female
  Weight: 118.04 kg

DRUGS (3)
  1. RITUXAN [Suspect]
     Active Substance: RITUXIMAB
     Indication: CRYOGLOBULINAEMIA
  2. RITUXAN [Suspect]
     Active Substance: RITUXIMAB
     Indication: RHEUMATOID ARTHRITIS
     Dosage: DOSE: 2 1000 MG IV INFUSIONS SEPARATED BY 2 WEEKS EVERY 6 MONTHS FOR A TOTAL OF 3 DOSES?LAST 2 DOSES
     Route: 042
     Dates: start: 20171001
  3. BACTRIM [Concomitant]
     Active Substance: SULFAMETHOXAZOLE\TRIMETHOPRIM

REACTIONS (9)
  - Gait disturbance [Unknown]
  - Ulcer [Recovered/Resolved]
  - Blood urea increased [Unknown]
  - Fatigue [Recovered/Resolved]
  - Systemic inflammatory response syndrome [Recovered/Resolved]
  - Pain [Recovered/Resolved]
  - Swelling [Unknown]
  - Obesity [Not Recovered/Not Resolved]
  - Tissue injury [Recovered/Resolved]
